FAERS Safety Report 10009412 (Version 2)
Quarter: 2014Q1

REPORT INFORMATION
  Report Type: Spontaneous
  Country: NL (occurrence: NL)
  Receive Date: 20140313
  Receipt Date: 20140313
  Transmission Date: 20141002
  Serious: Yes (Disabling)
  Sender: FDA-Public Use
  Company Number: PHHY2013NL022510

PATIENT
  Sex: Male

DRUGS (4)
  1. EXJADE [Suspect]
     Indication: THALASSAEMIA BETA
     Dosage: 1500 MG, QD
     Route: 048
     Dates: start: 20100805
  2. EXJADE [Suspect]
     Indication: HAEMOCHROMATOSIS
  3. ALENDRONIC ACID [Concomitant]
     Dosage: 70 MG, ONCE PER WEEKS
  4. FOLIC ACID [Concomitant]
     Dosage: 5 MG (3 PER WEEKS)

REACTIONS (7)
  - Psoriasis [Recovering/Resolving]
  - Pruritus [Unknown]
  - Rash erythematous [Unknown]
  - Gastrointestinal disorder [Recovering/Resolving]
  - Abdominal pain [Unknown]
  - Eczema [Unknown]
  - Therapeutic response decreased [Not Recovered/Not Resolved]
